FAERS Safety Report 4870974-3 (Version None)
Quarter: 2005Q4

REPORT INFORMATION
  Report Type: 
  Country: None (occurrence: None)
  Receive Date: 20051229
  Receipt Date: 20051208
  Transmission Date: 20060501
  Serious: Yes (Hospitalization)
  Sender: FDA-Public Use
  Company Number: DK200512003727

PATIENT
  Age: 34 Year
  Sex: Male
  Weight: 70 kg

DRUGS (6)
  1. ZYPREXA [Suspect]
     Indication: PSYCHOTIC DISORDER
     Dosage: SEE IMAGE
     Route: 048
     Dates: start: 20050930, end: 20051003
  2. ZYPREXA [Suspect]
     Indication: PSYCHOTIC DISORDER
     Dosage: SEE IMAGE
     Route: 048
     Dates: start: 20051003, end: 20051017
  3. ZYPREXA [Suspect]
     Indication: PSYCHOTIC DISORDER
     Dosage: SEE IMAGE
     Route: 048
     Dates: start: 20051027, end: 20051101
  4. CISORDINOL (CLOPENTHIXOL HYDROCHLORIDE) [Concomitant]
  5. PAMOL (PARACETAMOL) [Concomitant]
  6. IBUMETIN (IBUPROFEN) [Concomitant]

REACTIONS (1)
  - NEUTROPHIL COUNT DECREASED [None]
